FAERS Safety Report 10505202 (Version 1)
Quarter: 2014Q4

REPORT INFORMATION
  Report Type: Spontaneous
  Country: FR (occurrence: FR)
  Receive Date: 20141008
  Receipt Date: 20141008
  Transmission Date: 20150528
  Serious: Yes (Hospitalization, Other)
  Sender: FDA-Public Use
  Company Number: FR-PFIZER INC-2014270882

PATIENT
  Age: 82 Year
  Sex: Male

DRUGS (11)
  1. OXYCONTIN [Concomitant]
     Active Substance: OXYCODONE HYDROCHLORIDE
  2. INLYTA [Suspect]
     Active Substance: AXITINIB
     Indication: RENAL CANCER
     Dosage: 5 MG, 2X/DAY
     Route: 048
     Dates: start: 201404, end: 20140830
  3. TAHOR [Concomitant]
     Active Substance: ATORVASTATIN CALCIUM
  4. XATRAL [Concomitant]
     Active Substance: ALFUZOSIN
  5. OMEPRAZOLE. [Concomitant]
     Active Substance: OMEPRAZOLE
  6. IMODIUM [Concomitant]
     Active Substance: LOPERAMIDE HYDROCHLORIDE
  7. PRUNUS AFRICANA EXTRACT [Concomitant]
  8. LACTEOL [Concomitant]
  9. CLOPIDOGREL [Concomitant]
     Active Substance: CLOPIDOGREL BISULFATE
  10. SPASFON [Concomitant]
     Active Substance: PHLOROGLUCINOL
  11. BIPRETERAX [Concomitant]
     Active Substance: INDAPAMIDE\PERINDOPRIL

REACTIONS (2)
  - Diarrhoea [Recovered/Resolved]
  - Acute kidney injury [Recovered/Resolved]

NARRATIVE: CASE EVENT DATE: 201408
